FAERS Safety Report 7637450-6 (Version None)
Quarter: 2011Q3

REPORT INFORMATION
  Report Type: 
  Country: None (occurrence: None)
  Receive Date: 20110726
  Receipt Date: 20110718
  Transmission Date: 20111222
  Serious: Yes (Other)
  Sender: FDA-Public Use
  Company Number: PHHY2011SG65561

PATIENT
  Age: 60 Year
  Sex: Male

DRUGS (1)
  1. ZOLEDRONOC ACID [Suspect]
     Indication: OSTEITIS DEFORMANS
     Dosage: 5 MG
     Route: 042
     Dates: start: 20110505

REACTIONS (3)
  - BONE PAIN [None]
  - DRUG INEFFECTIVE [None]
  - BLOOD ALKALINE PHOSPHATASE INCREASED [None]
